FAERS Safety Report 14583287 (Version 3)
Quarter: 2018Q2

REPORT INFORMATION
  Report Type: Spontaneous
  Country: US (occurrence: US)
  Receive Date: 20180228
  Receipt Date: 20180402
  Transmission Date: 20180711
  Serious: No
  Sender: FDA-Public Use
  Company Number: US-TAIHO ONCOLOGY INC-EU-2018-00286

PATIENT
  Sex: Male

DRUGS (5)
  1. LONSURF [Suspect]
     Active Substance: TIPIRACIL HYDROCHLORIDE\TRIFLURIDINE
     Indication: COLON CANCER
     Route: 048
     Dates: start: 20171023, end: 20180115
  2. GABAPENTIN. [Concomitant]
     Active Substance: GABAPENTIN
     Dosage: NI
  3. PROPRANOLOL [Concomitant]
     Active Substance: PROPRANOLOL HYDROCHLORIDE
     Dosage: NI
  4. FERROUS SULFATE. [Concomitant]
     Active Substance: FERROUS SULFATE
     Dosage: NI
  5. DOXYCYCLINE. [Concomitant]
     Active Substance: DOXYCYCLINE
     Dosage: NI

REACTIONS (1)
  - Disease progression [Unknown]
